FAERS Safety Report 22373612 (Version 1)
Quarter: 2023Q2

REPORT INFORMATION
  Report Type: Spontaneous
  Country: US (occurrence: None)
  Receive Date: 20230526
  Receipt Date: 20230526
  Transmission Date: 20230721
  Serious: Yes (Death)
  Sender: FDA-Public Use
  Company Number: None

PATIENT
  Age: 97 Year
  Sex: Male

DRUGS (1)
  1. PROMACTA [Suspect]
     Active Substance: ELTROMBOPAG OLAMINE
     Indication: Haemolytic uraemic syndrome
     Dosage: FREQUENCY : DAILY;?
     Route: 048
     Dates: start: 202301, end: 20230526

REACTIONS (1)
  - Death [None]

NARRATIVE: CASE EVENT DATE: 20230508
